FAERS Safety Report 8247756-8 (Version None)
Quarter: 2012Q1

REPORT INFORMATION
  Report Type: 
  Country: None (occurrence: None)
  Receive Date: 20120330
  Receipt Date: 20120327
  Transmission Date: 20120608
  Serious: Yes (Death, Life-Threatening, Hospitalization)
  Sender: FDA-Public Use
  Company Number: NL-GLAXOSMITHKLINE-B0789784A

PATIENT
  Sex: Male

DRUGS (3)
  1. IFOSFAMIDE [Suspect]
     Indication: NEOPLASM MALIGNANT
     Dosage: 3GM2 CYCLIC
     Route: 042
     Dates: start: 20120207, end: 20120301
  2. TELMISARTAN [Concomitant]
     Indication: HYPERTENSION
     Dosage: 40MG PER DAY
     Route: 048
  3. VOTRIENT [Suspect]
     Indication: NEOPLASM MALIGNANT
     Dosage: 200MG PER DAY
     Route: 048
     Dates: start: 20120214

REACTIONS (2)
  - INFECTION [None]
  - CARDIAC ARREST [None]
